FAERS Safety Report 5735006-3 (Version None)
Quarter: 2008Q2

REPORT INFORMATION
  Report Type: 
  Country: None (occurrence: None)
  Receive Date: 20080512
  Receipt Date: 20080505
  Transmission Date: 20081010
  Serious: Yes (Other)
  Sender: FDA-Public Use
  Company Number: PT-AVENTIS-200814136GDDC

PATIENT
  Sex: Male
  Weight: 81 kg

DRUGS (1)
  1. TELFAST                            /01314201/ [Suspect]
     Dosage: DOSE: UNK
     Route: 048

REACTIONS (1)
  - ARRHYTHMIA [None]
